FAERS Safety Report 9401537 (Version 1)
Quarter: 2013Q3

REPORT INFORMATION
  Report Type: Spontaneous
  Country: JP (occurrence: JP)
  Receive Date: 20130716
  Receipt Date: 20130716
  Transmission Date: 20140515
  Serious: Yes (Death, Other)
  Sender: FDA-Public Use
  Company Number: JP-ROCHE-1248291

PATIENT
  Age: 36 Year
  Sex: Female
  Weight: 47 kg

DRUGS (14)
  1. AVASTIN [Suspect]
     Indication: SMALL INTESTINE CARCINOMA METASTATIC
     Dosage: DOSAGE IS UNCERTAIN.
     Route: 041
  2. AVASTIN [Suspect]
     Indication: SMALL INTESTINE CARCINOMA RECURRENT
     Dosage: DOSAGE IS UNCERTAIN.
     Route: 041
  3. AVASTIN [Suspect]
     Indication: OFF LABEL USE
  4. OXALIPLATIN [Concomitant]
     Indication: SMALL INTESTINE CARCINOMA METASTATIC
     Dosage: DOSAGE IS UNCERTAIN.
     Route: 041
  5. 5-FU [Concomitant]
     Indication: SMALL INTESTINE CARCINOMA METASTATIC
     Dosage: DOSAGE IS UNCERTAIN.
     Route: 040
  6. 5-FU [Concomitant]
     Indication: SMALL INTESTINE CARCINOMA METASTATIC
     Dosage: DOSAGE IS UNCERTAIN.
     Route: 041
  7. 5-FU [Concomitant]
     Indication: SMALL INTESTINE CARCINOMA RECURRENT
     Dosage: DOSAGE IS UNCERTAIN.
     Route: 040
  8. 5-FU [Concomitant]
     Indication: SMALL INTESTINE CARCINOMA RECURRENT
     Dosage: DOSAGE IS UNCERTAIN.
     Route: 041
  9. LEVOFOLINATE [Concomitant]
     Indication: SMALL INTESTINE CARCINOMA METASTATIC
     Dosage: DOSAGE IS UNCERTAIN.
     Route: 041
  10. LEVOFOLINATE [Concomitant]
     Indication: SMALL INTESTINE CARCINOMA RECURRENT
     Dosage: DOSAGE IS UNCERTAIN.
     Route: 041
  11. IRINOTECAN HYDROCHLORIDE TRIHYDRATE [Concomitant]
     Indication: SMALL INTESTINE CARCINOMA RECURRENT
     Dosage: DOSAGE IS UNCERTAIN.
     Route: 041
  12. TS-1 [Concomitant]
     Indication: SMALL INTESTINE CARCINOMA RECURRENT
     Dosage: DOSAGE IS UNCERTAIN.
     Route: 048
  13. PACLITAXEL [Concomitant]
     Indication: SMALL INTESTINE CARCINOMA RECURRENT
     Dosage: DOSAGE IS UNCERTAIN.
     Route: 041
  14. CISPLATIN [Concomitant]
     Indication: SMALL INTESTINE CARCINOMA RECURRENT
     Dosage: DOSAGE IS UNCERTAIN.
     Route: 041

REACTIONS (2)
  - Small intestine carcinoma metastatic [Fatal]
  - Pelvic neoplasm [Unknown]
